FAERS Safety Report 5293653-X (Version None)
Quarter: 2007Q2

REPORT INFORMATION
  Report Type: 
  Country: None (occurrence: None)
  Receive Date: 20070411
  Receipt Date: 20070404
  Transmission Date: 20071010
  Serious: Yes (Life-Threatening)
  Sender: FDA-Public Use
  Company Number: US-GENENTECH-238173

PATIENT
  Age: 65 Year
  Sex: Female

DRUGS (15)
  1. RITUXAN [Suspect]
     Indication: DIFFUSE LARGE B-CELL LYMPHOMA
     Dosage: UNK, UNK
  2. RITUXAN [Suspect]
     Dosage: 375 MG/M2, UNK
     Dates: start: 20041001, end: 20050101
  3. RITUXAN [Suspect]
     Dosage: 250 MG/M2, UNK
     Dates: start: 20050406, end: 20050413
  4. VINCRISTINE [Concomitant]
     Indication: DIFFUSE LARGE B-CELL LYMPHOMA
  5. DOXORUBICIN HCL [Concomitant]
     Indication: DIFFUSE LARGE B-CELL LYMPHOMA
  6. CYCLOPHOSPHAMIDE [Concomitant]
     Indication: DIFFUSE LARGE B-CELL LYMPHOMA
  7. PREDNISOLONE [Concomitant]
     Indication: DIFFUSE LARGE B-CELL LYMPHOMA
  8. FLUDARABINE [Concomitant]
     Indication: DIFFUSE LARGE B-CELL LYMPHOMA
  9. MITOXANTRONE [Concomitant]
     Indication: DIFFUSE LARGE B-CELL LYMPHOMA
  10. DEXAMETHASONE [Concomitant]
     Indication: DIFFUSE LARGE B-CELL LYMPHOMA
  11. ZEVALIN [Concomitant]
     Indication: DIFFUSE LARGE B-CELL LYMPHOMA
     Dates: start: 20050406, end: 20050413
  12. ZEVALIN [Concomitant]
     Indication: DIFFUSE LARGE B-CELL LYMPHOMA
     Dates: start: 20050406, end: 20050413
  13. ALTACE [Concomitant]
     Indication: DRUG USE FOR UNKNOWN INDICATION
     Dosage: 5 MG, UNK
     Dates: start: 20050101
  14. AMBIEN [Concomitant]
     Indication: DRUG USE FOR UNKNOWN INDICATION
     Dosage: 5 MG, UNK
  15. CYMBALTA [Concomitant]
     Indication: DRUG USE FOR UNKNOWN INDICATION
     Dosage: 140 MG, UNK
     Dates: start: 20060101

REACTIONS (1)
  - MYELODYSPLASTIC SYNDROME [None]
